FAERS Safety Report 10075686 (Version 2)
Quarter: 2014Q2

REPORT INFORMATION
  Report Type: Spontaneous
  Country: JP (occurrence: JP)
  Receive Date: 20140414
  Receipt Date: 20140505
  Transmission Date: 20141212
  Serious: Yes (Other)
  Sender: FDA-Public Use
  Company Number: JP-ROCHE-1378146

PATIENT
  Age: 62 Year
  Sex: Female
  Weight: 45 kg

DRUGS (6)
  1. ACTEMRA [Suspect]
     Indication: RHEUMATOID ARTHRITIS
     Dosage: DOSAGE IS UNCERTAIN.
     Route: 041
     Dates: start: 20120721, end: 20131005
  2. ACTEMRA [Suspect]
     Indication: RHEUMATOID ARTHRITIS
     Dosage: DOSAGE IS UNCERTAIN.
     Route: 041
     Dates: start: 20140118, end: 20140118
  3. RIMATIL [Concomitant]
     Route: 065
  4. AZULFIDINE-EN [Concomitant]
     Route: 065
  5. GASLON N [Concomitant]
     Route: 048
     Dates: start: 20121229
  6. TAKEPRON [Concomitant]
     Route: 048
     Dates: start: 20120920

REACTIONS (1)
  - Interstitial lung disease [Recovering/Resolving]
